FAERS Safety Report 7111753-6 (Version None)
Quarter: 2010Q4

REPORT INFORMATION
  Report Type: 
  Country: None (occurrence: None)
  Receive Date: 20101118
  Receipt Date: 20101111
  Transmission Date: 20110411
  Serious: Yes (Hospitalization)
  Sender: FDA-Public Use
  Company Number: PT-AMGEN-KDC430711

PATIENT
  Sex: Male

DRUGS (5)
  1. DARBEPOETIN ALFA [Suspect]
     Indication: RENAL FAILURE CHRONIC
     Dosage: 10 A?G, Q2WK
     Route: 058
     Dates: start: 20081128
  2. FERRUM HAUSMANN                    /00008101/ [Concomitant]
     Dosage: 125 MG, QD
  3. FOLICIL [Concomitant]
     Dosage: UNK UNK, QWK
  4. CALCIDOL                           /00414701/ [Concomitant]
     Dosage: UNK UNK, QD
     Route: 048
  5. CEFRADUR                           /00004702/ [Concomitant]
     Dosage: 125 MG, QD

REACTIONS (2)
  - PROTEUS TEST POSITIVE [None]
  - URINARY TRACT INFECTION [None]
